FAERS Safety Report 5661102-5 (Version None)
Quarter: 2008Q1

REPORT INFORMATION
  Report Type: 
  Country: None (occurrence: None)
  Receive Date: 20080204
  Receipt Date: 20071005
  Transmission Date: 20080703
  Serious: Yes (Other)
  Sender: FDA-Public Use
  Company Number: PHEH2007US13233

PATIENT
  Sex: Male

DRUGS (1)
  1. EXELON [Suspect]
     Dosage: 4.6 MG, ONCE/SINGLE, TRANSDERMAL
     Route: 062
     Dates: start: 20071004

REACTIONS (1)
  - CONFUSIONAL STATE [None]
